FAERS Safety Report 4423056-9 (Version None)
Quarter: 2004Q3

REPORT INFORMATION
  Report Type: 
  Country: None (occurrence: None)
  Receive Date: 20040806
  Receipt Date: 20040719
  Transmission Date: 20050211
  Serious: Yes (Other)
  Sender: FDA-Public Use
  Company Number: USA040773003

PATIENT
  Sex: Female

DRUGS (1)
  1. EVISTA [Suspect]

REACTIONS (4)
  - BONE MARROW DISORDER [None]
  - GRANULOMA [None]
  - RED BLOOD CELL ABNORMALITY [None]
  - SCOLIOSIS [None]
